FAERS Safety Report 23426782 (Version 1)
Quarter: 2024Q1

REPORT INFORMATION
  Report Type: Spontaneous
  Country: GB (occurrence: GB)
  Receive Date: 20240122
  Receipt Date: 20240122
  Transmission Date: 20240409
  Serious: Yes (Other)
  Sender: FDA-Public Use
  Company Number: None

PATIENT

DRUGS (7)
  1. FINASTERIDE [Suspect]
     Active Substance: FINASTERIDE
     Indication: Product used for unknown indication
  2. AMANTADINE [Concomitant]
     Active Substance: AMANTADINE
  3. BENSERAZIDE HYDROCHLORIDE\LEVODOPA [Concomitant]
     Active Substance: BENSERAZIDE HYDROCHLORIDE\LEVODOPA
  4. OPICAPONE [Concomitant]
     Active Substance: OPICAPONE
  5. ROPINIROLE [Concomitant]
     Active Substance: ROPINIROLE
  6. SAFINAMIDE [Concomitant]
     Active Substance: SAFINAMIDE
  7. SIMVASTATIN [Concomitant]
     Active Substance: SIMVASTATIN

REACTIONS (1)
  - Hallucination [Recovered/Resolved]
